FAERS Safety Report 4868323-X (Version None)
Quarter: 2005Q4

REPORT INFORMATION
  Report Type: 
  Country: None (occurrence: None)
  Receive Date: 20051223
  Receipt Date: 20051217
  Transmission Date: 20060501
  Serious: Yes (Other)
  Sender: FDA-Public Use
  Company Number: 2005US001448

PATIENT
  Age: 1 Year
  Sex: Female
  Weight: 5.9875 kg

DRUGS (9)
  1. PROGRAF [Suspect]
     Indication: PROPHYLAXIS AGAINST TRANSPLANT REJECTION
     Dosage: 1 MG BID
     Dates: start: 20050501
  2. PREDNISOLONE [Concomitant]
  3. ACYCLOVIR [Concomitant]
  4. SULFAMETHOXAZOLE W/TRIMETHIPROMIM(SULFAMETHOXAZOLE/TRIMETHOPRIM) [Concomitant]
  5. NYSTATIN [Concomitant]
  6. BICITRA (SODIUM CITRATE, CITRIC ACID) [Concomitant]
  7. RELGAN (METOCLOPRAMIDE HYDROCHLORIDE) [Concomitant]
  8. PREVACID [Concomitant]
  9. CARNITINE(CARNITINE) [Concomitant]

REACTIONS (5)
  - DIFFICULT TO WEAN FROM VENTILATOR [None]
  - PLEURAL EFFUSION [None]
  - PULMONARY HYPERTENSION [None]
  - PULMONARY OEDEMA [None]
  - RESPIRATORY DISTRESS [None]
